FAERS Safety Report 5795586-9 (Version None)
Quarter: 2008Q2

REPORT INFORMATION
  Report Type: 
  Country: None (occurrence: None)
  Receive Date: 20080630
  Receipt Date: 20080619
  Transmission Date: 20081010
  Serious: Yes (Other)
  Sender: FDA-Public Use
  Company Number: US-PFIZER INC-2008052051

PATIENT
  Sex: Female
  Weight: 49.9 kg

DRUGS (3)
  1. CHANTIX [Suspect]
     Indication: SMOKING CESSATION THERAPY
     Dates: start: 20080430, end: 20080501
  2. TYLENOL [Concomitant]
  3. CONTRACEPTIVE, UNSPECIFIED [Concomitant]

REACTIONS (8)
  - CONSTIPATION [None]
  - HAEMORRHAGE [None]
  - MALAISE [None]
  - NAUSEA [None]
  - SLEEP DISORDER [None]
  - SWELLING [None]
  - UTERINE LEIOMYOMA [None]
  - WEIGHT INCREASED [None]
